FAERS Safety Report 6128168-X (Version None)
Quarter: 2009Q1

REPORT INFORMATION
  Report Type: 
  Country: None (occurrence: None)
  Receive Date: 20090323
  Receipt Date: 20090310
  Transmission Date: 20090719
  Serious: Yes (Other)
  Sender: FDA-Public Use
  Company Number: GB-JNJFOC-20090305345

PATIENT
  Age: 62 Year
  Sex: Female

DRUGS (6)
  1. TRAMADOL HYDROCHLORIDE [Suspect]
     Indication: POSTOPERATIVE ANALGESIA
     Route: 048
     Dates: start: 20081013, end: 20081014
  2. DALTEPARIN SODIUM [Concomitant]
     Route: 065
  3. LANSOPRAZOLE [Concomitant]
     Route: 065
  4. OXYNORM [Concomitant]
     Route: 065
  5. PARACETAMOL [Concomitant]
     Route: 065
  6. PENICILLIN [Concomitant]
     Route: 065

REACTIONS (1)
  - PALPITATIONS [None]
